FAERS Safety Report 22219322 (Version 1)
Quarter: 2023Q2

REPORT INFORMATION
  Report Type: Spontaneous
  Country: US (occurrence: US)
  Receive Date: 20230417
  Receipt Date: 20230417
  Transmission Date: 20230721
  Serious: No
  Sender: FDA-Public Use
  Company Number: US-PFIZER INC-202300156104

PATIENT
  Age: 67 Year
  Sex: Female
  Weight: 81.65 kg

DRUGS (9)
  1. IBRANCE [Suspect]
     Active Substance: PALBOCICLIB
     Indication: Breast cancer
     Dosage: UNK
     Dates: start: 20230301
  2. ANASTROZOLE [Concomitant]
     Active Substance: ANASTROZOLE
     Indication: Neoplasm malignant
     Dosage: 1 MG, 1X/DAY (IN THE MORNING)
  3. TELMISARTAN [Concomitant]
     Active Substance: TELMISARTAN
     Indication: Blood pressure abnormal
     Dosage: 80 MG, 1X/DAY (IN THE MORNING)
  4. HYDROCHLOROTHIAZIDE [Concomitant]
     Active Substance: HYDROCHLOROTHIAZIDE
     Indication: Diuretic therapy
     Dosage: 25 MG, 1X/DAY (IN THE MORNING)
  5. ROSUVASTATIN [Concomitant]
     Active Substance: ROSUVASTATIN
     Indication: Blood cholesterol abnormal
     Dosage: 40 MG, 1X/DAY (AT NIGHT)
  6. AMLODIPINE BESYLATE [Concomitant]
     Active Substance: AMLODIPINE BESYLATE
     Indication: Hypertension
     Dosage: 2.5 MG, 1X/DAY (5MG TABLETS THAT SHE TAKES 1/2 TABLET 2.5MG AT NIGHT)
  7. AMITRIPTYLINE [Concomitant]
     Active Substance: AMITRIPTYLINE
     Indication: Migraine
     Dosage: 10 MG
  8. VITAMIN D2 [Concomitant]
     Active Substance: ERGOCALCIFEROL
     Dosage: 1250 MCG 50 UNITS, WEEKLY
  9. MAGNESIUM OXIDE [Concomitant]
     Active Substance: MAGNESIUM OXIDE
     Indication: Migraine
     Dosage: 400 MG, EVERY OTHER NIGHT

REACTIONS (5)
  - Weight abnormal [Unknown]
  - Fatigue [Unknown]
  - Abdominal distension [Unknown]
  - Body height decreased [Unknown]
  - Dyspepsia [Unknown]

NARRATIVE: CASE EVENT DATE: 20230101
